FAERS Safety Report 7290650-X (Version None)
Quarter: 2011Q1

REPORT INFORMATION
  Report Type: 
  Country: None (occurrence: None)
  Receive Date: 20110209
  Receipt Date: 20110209
  Transmission Date: 20110831
  Serious: Yes (Death)
  Sender: FDA-Public Use
  Company Number: None

PATIENT
  Age: 77 Year
  Sex: Male
  Weight: 114.5 kg

DRUGS (7)
  1. ASPIRIN [Concomitant]
  2. LIPITOR [Concomitant]
  3. OMEPRAZOLE [Concomitant]
  4. BUMETANIDE [Concomitant]
  5. OMEGA-3 FATTY ACIDS [Concomitant]
  6. PRADAXA [Suspect]
     Indication: ATRIAL FIBRILLATION
     Dosage: 150 MG TWICE A DAY ORAL
     Route: 048
     Dates: start: 20101204, end: 20110127
  7. BISOPROLOL FUMARATE [Concomitant]

REACTIONS (4)
  - PERICARDIAL HAEMORRHAGE [None]
  - CARDIAC ARREST [None]
  - RENAL IMPAIRMENT [None]
  - DRUG CLEARANCE DECREASED [None]
